FAERS Safety Report 13772579 (Version 1)
Quarter: 2017Q3

REPORT INFORMATION
  Report Type: Spontaneous
  Country: FR (occurrence: FR)
  Receive Date: 20170720
  Receipt Date: 20170720
  Transmission Date: 20171127
  Serious: Yes (Other)
  Sender: FDA-Public Use
  Company Number: FR-BAYER-2017-134658

PATIENT
  Age: 37 Year
  Sex: Female

DRUGS (1)
  1. MIRENA [Suspect]
     Active Substance: LEVONORGESTREL
     Indication: MENORRHAGIA
     Dosage: 20 MCG/24HR, CONT
     Route: 015
     Dates: start: 20131029

REACTIONS (9)
  - Irritability [Unknown]
  - Fibrocystic breast disease [Unknown]
  - Vertigo [Unknown]
  - Libido decreased [Unknown]
  - Asthenia [Unknown]
  - Muscle spasms [Unknown]
  - Diffuse alopecia [Unknown]
  - Headache [Unknown]
  - Palpitations [Unknown]

NARRATIVE: CASE EVENT DATE: 2014
